FAERS Safety Report 8493475 (Version 5)
Quarter: 2014Q1

REPORT INFORMATION
  Report Type: Spontaneous
  Country: CN (occurrence: CN)
  Receive Date: 20120404
  Receipt Date: 20140226
  Transmission Date: 20141002
  Serious: Yes (Other)
  Sender: FDA-Public Use
  Company Number: CN-BRACCO-000285

PATIENT
  Age: 68 Year
  Sex: Female

DRUGS (2)
  1. IOPAMIRO [Suspect]
     Indication: COMPUTERISED TOMOGRAM ABDOMEN
     Route: 047
     Dates: start: 20120209, end: 20120209
  2. MEGLUMINE DIATRIZOATE [Suspect]
     Indication: COMPUTERISED TOMOGRAM ABDOMEN
     Route: 047
     Dates: start: 20120209, end: 20120209

REACTIONS (9)
  - Accidental exposure to product [Recovered/Resolved]
  - Visual acuity reduced [Recovered/Resolved]
  - Eye pain [Recovered/Resolved]
  - Eye irritation [Recovered/Resolved]
  - Ocular hyperaemia [Recovered/Resolved]
  - Dry eye [Recovered/Resolved]
  - Foreign body sensation in eyes [Recovered/Resolved]
  - Abnormal sensation in eye [Recovered/Resolved]
  - Vision blurred [Recovered/Resolved]
